FAERS Safety Report 5647416-3 (Version None)
Quarter: 2008Q1

REPORT INFORMATION
  Report Type: 
  Country: None (occurrence: None)
  Receive Date: 20080303
  Receipt Date: 20080222
  Transmission Date: 20080703
  Serious: Yes (Disabling)
  Sender: FDA-Public Use
  Company Number: JP-ASTRAZENECA-2008AP01278

PATIENT
  Age: 21 Year
  Sex: Female

DRUGS (5)
  1. MARCAINE HYDROCHLORIDE PRESERVATIVE FREE [Suspect]
     Indication: SPINAL ANAESTHESIA
     Route: 037
  2. ANAPEINE INJECTION [Suspect]
     Indication: EPIDURAL ANAESTHESIA
     Dosage: MIXED WITH DROLEPTAN 5 MG 2 CC, 2 ML/HR EPIDURALLY, STOPPED 48 HOURS LATER.
     Route: 008
  3. DROLEPTAN [Suspect]
     Indication: EPIDURAL ANAESTHESIA
     Dosage: MIXED WITH ANAPAINE 2 MG, 2 ML/HR EPIDURALLY, STOPPED 48 HOURS LATER.
     Route: 008
  4. CEFAMEZIN [Concomitant]
     Route: 065
  5. PRIMPERAN INJ [Concomitant]
     Dosage: 0.5 % 2 ML 1A (PERIOPERATIVELY)
     Route: 065

REACTIONS (1)
  - EXTRAPYRAMIDAL DISORDER [None]
